FAERS Safety Report 16944635 (Version 1)
Quarter: 2019Q4

REPORT INFORMATION
  Report Type: Report from Study
  Country: US (occurrence: US)
  Receive Date: 20191022
  Receipt Date: 20191022
  Transmission Date: 20200122
  Serious: Yes (Hospitalization)
  Sender: FDA-Public Use
  Company Number: US-ROCHE-2440047

PATIENT
  Age: 61 Year
  Sex: Male
  Weight: 65.83 kg

DRUGS (4)
  1. BABY ASPIRIN [Concomitant]
     Active Substance: ASPIRIN
     Route: 048
     Dates: start: 20140101
  2. OCREVUS [Suspect]
     Active Substance: OCRELIZUMAB
     Indication: PRIMARY PROGRESSIVE MULTIPLE SCLEROSIS
     Dosage: THEN 600 MG EVERY 6 MONTHS?MOST RECENT DOSE OF OCRELIZUMAB: 13/MAY/2019
     Route: 042
     Dates: start: 20190429
  3. AMANTADINE. [Concomitant]
     Active Substance: AMANTADINE HYDROCHLORIDE
     Route: 048
     Dates: start: 2009
  4. BACLOFEN. [Concomitant]
     Active Substance: BACLOFEN
     Dosage: THROUGH OUT THE DAY
     Route: 048
     Dates: start: 20050101

REACTIONS (2)
  - Sepsis [Recovered/Resolved]
  - Pneumonia [Recovered/Resolved]

NARRATIVE: CASE EVENT DATE: 20190520
